APPROVED DRUG PRODUCT: ERYTHROMYCIN
Active Ingredient: ERYTHROMYCIN
Strength: 1.5%
Dosage Form/Route: SOLUTION;TOPICAL
Application: A062328 | Product #001
Applicant: ALPHARMA US PHARMACEUTICALS DIVISION
Approved: Apr 19, 1982 | RLD: No | RS: No | Type: DISCN